FAERS Safety Report 6474595-0 (Version None)
Quarter: 2009Q4

REPORT INFORMATION
  Report Type: 
  Country: None (occurrence: None)
  Receive Date: 20091204
  Receipt Date: 20090710
  Transmission Date: 20100525
  Serious: Yes (Hospitalization, Other)
  Sender: FDA-Public Use
  Company Number: US-ELI_LILLY_AND_COMPANY-US200901005029

PATIENT
  Sex: Female

DRUGS (5)
  1. BYETTA [Suspect]
     Dosage: 5 UG, 2/D
     Route: 058
     Dates: start: 20080228
  2. BYETTA [Suspect]
     Dosage: 10 UG, 2/D
     Route: 058
     Dates: start: 20080328, end: 20080601
  3. HUMALOG [Concomitant]
     Dosage: UNK, UNKNOWN
     Dates: start: 20080701
  4. ACTOS [Concomitant]
     Dosage: UNK, UNKNOWN
  5. CORTICOSTEROIDS [Concomitant]
     Dosage: UNK, UNKNOWN

REACTIONS (4)
  - CARDIAC FAILURE CONGESTIVE [None]
  - DRUG INEFFECTIVE [None]
  - FIBROSIS [None]
  - LUNG DISORDER [None]
